FAERS Safety Report 9972332 (Version 1)
Quarter: 2014Q1

REPORT INFORMATION
  Report Type: Spontaneous
  Country: AU (occurrence: None)
  Receive Date: 20140304
  Receipt Date: 20140304
  Transmission Date: 20141002
  Serious: Yes (Death)
  Sender: FDA-Public Use
  Company Number: NL01PV14.35454

PATIENT
  Age: 24 Year
  Sex: Female

DRUGS (4)
  1. ZOLPIDEM [Suspect]
  2. DULOXETINE [Suspect]
  3. ETHANOL (ETHANOL) (ETHANOL) [Suspect]
  4. QUININE [Suspect]

REACTIONS (5)
  - Multiple injuries [None]
  - Contusion [None]
  - Excoriation [None]
  - Lower limb fracture [None]
  - Foot amputation [None]
